FAERS Safety Report 15115031 (Version 6)
Quarter: 2018Q3

REPORT INFORMATION
  Report Type: Report from Study
  Country: PL (occurrence: PL)
  Receive Date: 20180706
  Receipt Date: 20180824
  Transmission Date: 20181010
  Serious: Yes (Hospitalization)
  Sender: FDA-Public Use
  Company Number: PL-ROCHE-2149744

PATIENT
  Age: 68 Year
  Sex: Male
  Weight: 87 kg

DRUGS (23)
  1. DEXAVEN [Concomitant]
     Active Substance: DEXAMETHASONE
     Route: 042
     Dates: start: 20180702, end: 20180708
  2. CLEMASTIN [Concomitant]
     Active Substance: CLEMASTINE
     Indication: RASH MACULO-PAPULAR
     Route: 042
     Dates: start: 20180630, end: 20180701
  3. AMARYL [Concomitant]
     Active Substance: GLIMEPIRIDE
     Indication: DIABETES MELLITUS
     Route: 048
  4. DORETA [Concomitant]
     Active Substance: ACETAMINOPHEN\TRAMADOL HYDROCHLORIDE
     Indication: PAIN
     Route: 048
  5. GENSULIN N [Concomitant]
     Indication: DIABETES MELLITUS
     Route: 058
  6. KETONAL (POLAND) [Concomitant]
     Indication: PAIN
     Route: 048
  7. DEXAVEN [Concomitant]
     Active Substance: DEXAMETHASONE
     Route: 042
     Dates: start: 20180719, end: 20180720
  8. BISOCARD [Concomitant]
     Active Substance: BISOPROLOL
     Indication: HYPERTENSION
     Route: 048
  9. HYPLAFIN [Concomitant]
     Indication: BENIGN PROSTATIC HYPERPLASIA
     Route: 048
  10. DEXAVEN [Concomitant]
     Active Substance: DEXAMETHASONE
     Indication: HYPERCORTICOIDISM
     Route: 030
     Dates: start: 20180701, end: 20180701
  11. COBIMETINIB. [Suspect]
     Active Substance: COBIMETINIB
     Indication: MALIGNANT MELANOMA
     Dosage: DATE OF MOST RECENT DOSE OF COBIMETINIB PRIOR TO AE ONSET: 30/JUN/2018 (60 MG)
     Route: 048
     Dates: start: 20180120
  12. METFORMAX [Concomitant]
     Active Substance: METFORMIN HYDROCHLORIDE
     Indication: DIABETES MELLITUS
     Route: 048
  13. DEXAVEN [Concomitant]
     Active Substance: DEXAMETHASONE
     Route: 042
     Dates: start: 20180711, end: 20180715
  14. VEMURAFENIB. [Suspect]
     Active Substance: VEMURAFENIB
     Indication: MALIGNANT MELANOMA
     Dosage: DATE OF MOST RECENT DOSE OF VEMURAFENIB PRIOR TO AE ONSET: 30/JUN/2018
     Route: 048
     Dates: start: 20180120
  15. ROSWERA [Concomitant]
     Active Substance: ROSUVASTATIN
     Indication: HYPERTENSION
     Route: 048
  16. PROSTAMNIC [Concomitant]
     Indication: BENIGN PROSTATIC HYPERPLASIA
     Route: 048
  17. DEXAVEN [Concomitant]
     Active Substance: DEXAMETHASONE
     Route: 042
     Dates: start: 20180709, end: 20180710
  18. PIRAMIL [Concomitant]
     Active Substance: RAMIPRIL
     Indication: HYPERTENSION
     Route: 048
  19. GENSULIN R [Concomitant]
     Active Substance: INSULIN HUMAN
     Indication: DIABETES MELLITUS
     Dosage: 10 U (UNIT)?AS NEEDED
     Route: 058
     Dates: start: 20180630, end: 20180727
  20. METIZOL (POLAND) [Concomitant]
     Indication: HYPERTHYROIDISM
     Route: 048
     Dates: start: 20180303
  21. DEXAVEN [Concomitant]
     Active Substance: DEXAMETHASONE
     Route: 042
     Dates: start: 20180716, end: 20180718
  22. NUTRIDRINK [Concomitant]
     Active Substance: CARBOHYDRATES\FATTY ACIDS\MINERALS\PROTEIN\VITAMINS
     Indication: WEIGHT DECREASED
     Route: 048
     Dates: start: 20180701, end: 20180710
  23. PLACEBO [Suspect]
     Active Substance: UNSPECIFIED INGREDIENT
     Indication: MALIGNANT MELANOMA
     Dosage: DATE OF MOST RECENT DOSE OF BLINDED ATEZOLIZUMAB PRIOR TO AE ONSET: 11/JUN/2018
     Route: 042
     Dates: start: 20180216

REACTIONS (1)
  - General physical health deterioration [Recovered/Resolved]

NARRATIVE: CASE EVENT DATE: 20180630
